FAERS Safety Report 12100084 (Version 1)
Quarter: 2016Q1

REPORT INFORMATION
  Report Type: Spontaneous
  Country: CA (occurrence: CA)
  Receive Date: 20160222
  Receipt Date: 20160222
  Transmission Date: 20160526
  Serious: Yes (Other)
  Sender: FDA-Public Use
  Company Number: CA-PFIZER INC-2016101225

PATIENT
  Age: 3 Year
  Sex: Male

DRUGS (1)
  1. CHILDRENS ADVIL [Suspect]
     Active Substance: IBUPROFEN
     Dosage: 1 DOSE, UNK
     Dates: start: 20160126, end: 20160126

REACTIONS (3)
  - Poor quality drug administered [Unknown]
  - Nonspecific reaction [Unknown]
  - Drug administration error [Unknown]

NARRATIVE: CASE EVENT DATE: 20160126
